FAERS Safety Report 4651263-9 (Version None)
Quarter: 2005Q2

REPORT INFORMATION
  Report Type: 
  Country: None (occurrence: None)
  Receive Date: 20050503
  Receipt Date: 20040830
  Transmission Date: 20051028
  Serious: Yes (Other)
  Sender: FDA-Public Use
  Company Number: PHNR2004AU01393

PATIENT
  Age: 73 Year
  Sex: Male

DRUGS (4)
  1. AREDIA [Suspect]
     Indication: MULTIPLE MYELOMA
     Dosage: 90 MG, QMO
     Dates: start: 20020304, end: 20030801
  2. ZOMETA [Suspect]
     Indication: MULTIPLE MYELOMA
     Dosage: 4 MG, QMO
     Dates: start: 20030801, end: 20040601
  3. CORTICOSTEROIDS [Concomitant]
     Indication: MULTIPLE MYELOMA
     Dates: start: 20020304
  4. THALIDOMIDE [Concomitant]
     Indication: MULTIPLE MYELOMA
     Dosage: 50 MG, QD
     Dates: start: 20030327

REACTIONS (9)
  - BONE LESION [None]
  - HYPOAESTHESIA [None]
  - IMPAIRED HEALING [None]
  - ORAL SOFT TISSUE DISORDER [None]
  - OSTEONECROSIS [None]
  - PAIN IN JAW [None]
  - SOFT TISSUE INFECTION [None]
  - TOOTH DISORDER [None]
  - TOOTH EXTRACTION [None]
